FAERS Safety Report 6305837-X (Version None)
Quarter: 2009Q3

REPORT INFORMATION
  Report Type: 
  Country: None (occurrence: None)
  Receive Date: 20090812
  Receipt Date: 20071121
  Transmission Date: 20100115
  Serious: Yes (Hospitalization, Other)
  Sender: FDA-Public Use
  Company Number: US-ASTRAZENECA-2006UW24250

PATIENT
  Age: 36 Year
  Sex: Male
  Weight: 79.8 kg

DRUGS (10)
  1. SEROQUEL [Suspect]
     Indication: INSOMNIA
     Dosage: 25MG-100MG
     Route: 048
     Dates: start: 20040401, end: 20041001
  2. SEROQUEL [Suspect]
     Indication: BIPOLAR DISORDER
     Dosage: 25MG-100MG
     Route: 048
     Dates: start: 20040401, end: 20041001
  3. SEROQUEL [Suspect]
     Indication: ANXIETY
     Dosage: 25MG-100MG
     Route: 048
     Dates: start: 20040401, end: 20041001
  4. SEROQUEL [Suspect]
     Route: 048
     Dates: start: 20040505
  5. SEROQUEL [Suspect]
     Route: 048
     Dates: start: 20040505
  6. SEROQUEL [Suspect]
     Route: 048
     Dates: start: 20040505
  7. TRAZODONE HCL [Concomitant]
     Route: 048
     Dates: start: 20040505
  8. ANAFRANIL [Concomitant]
     Indication: OBSESSIVE-COMPULSIVE DISORDER
     Dosage: 50-150 MG
     Route: 048
     Dates: start: 20040701
  9. XANAX [Concomitant]
     Indication: ANXIETY
     Dates: start: 20070603
  10. REGLAN [Concomitant]
     Indication: IMPAIRED GASTRIC EMPTYING
     Dates: start: 20070603

REACTIONS (15)
  - BACK PAIN [None]
  - BLOOD TRIGLYCERIDES INCREASED [None]
  - CHOLELITHIASIS [None]
  - DIABETES MELLITUS [None]
  - DIABETIC COMA [None]
  - DIABETIC KETOACIDOSIS [None]
  - DIABETIC NEUROPATHY [None]
  - HEPATIC ENZYME INCREASED [None]
  - HYPERGLYCAEMIA [None]
  - IMPAIRED GASTRIC EMPTYING [None]
  - INTERVERTEBRAL DISC DISPLACEMENT [None]
  - INTERVERTEBRAL DISC PROTRUSION [None]
  - LIVER DISORDER [None]
  - TYPE 1 DIABETES MELLITUS [None]
  - VOMITING [None]
